FAERS Safety Report 5384749-2 (Version None)
Quarter: 2007Q3

REPORT INFORMATION
  Report Type: 
  Country: None (occurrence: None)
  Receive Date: 20070711
  Receipt Date: 20070629
  Transmission Date: 20080115
  Serious: Yes (Other)
  Sender: FDA-Public Use
  Company Number: US-PFIZER INC-2007054243

PATIENT
  Sex: Female
  Weight: 86.2 kg

DRUGS (2)
  1. CHANTIX [Suspect]
     Indication: SMOKING CESSATION THERAPY
  2. PROAIR HFA [Concomitant]

REACTIONS (3)
  - INSOMNIA [None]
  - MOVEMENT DISORDER [None]
  - TREMOR [None]
